FAERS Safety Report 13773139 (Version 1)
Quarter: 2017Q3

REPORT INFORMATION
  Report Type: Spontaneous
  Country: CH (occurrence: CH)
  Receive Date: 20170720
  Receipt Date: 20170720
  Transmission Date: 20171127
  Serious: Yes (Life-Threatening)
  Sender: FDA-Public Use
  Company Number: CH-PFIZER INC-2017311756

PATIENT
  Age: 81 Year
  Sex: Female

DRUGS (16)
  1. CORDARONE [Suspect]
     Active Substance: AMIODARONE HYDROCHLORIDE
     Dosage: 100 MG, DAILY
     Route: 048
     Dates: end: 20170606
  2. NEXIUM [Suspect]
     Active Substance: ESOMEPRAZOLE MAGNESIUM
     Indication: GASTROINTESTINAL HAEMORRHAGE
     Dosage: 20 MG, DAILY
     Route: 048
  3. SINTROM [Suspect]
     Active Substance: ACENOCOUMAROL
     Indication: ATRIAL FIBRILLATION
     Dosage: UNK
     Route: 048
     Dates: start: 20170128, end: 20170604
  4. IPRAMOL [Concomitant]
     Active Substance: ALBUTEROL SULFATE\IPRATROPIUM BROMIDE
     Dosage: UNK
  5. ALDACTONE [Concomitant]
     Active Substance: SPIRONOLACTONE
     Dosage: UNK
     Dates: end: 20170622
  6. KONAKION [Concomitant]
     Active Substance: PHYTONADIONE
     Dosage: UNK
     Dates: start: 20170515
  7. FLAGYL [Suspect]
     Active Substance: METRONIDAZOLE\METRONIDAZOLE HYDROCHLORIDE
     Indication: PNEUMONIA
     Dosage: 500 MG, 3X/DAY
     Route: 048
     Dates: start: 20170516, end: 20170519
  8. ELIQUIS [Concomitant]
     Active Substance: APIXABAN
     Dosage: UNK
     Dates: start: 20170607
  9. ZYRTEC [Concomitant]
     Active Substance: CETIRIZINE HYDROCHLORIDE
     Dosage: UNK
  10. CIRCADIN [Concomitant]
     Active Substance: MELATONIN
     Dosage: UNK
     Dates: start: 20170531
  11. LYRICA [Concomitant]
     Active Substance: PREGABALIN
     Dosage: UNK
     Dates: end: 20170622
  12. TOREM [Concomitant]
     Active Substance: TORSEMIDE
     Dosage: UNK
  13. DOXYCYCLINE HYCLATE. [Suspect]
     Active Substance: DOXYCYCLINE HYCLATE
     Indication: PNEUMONIA
     Dosage: UNK
     Route: 048
     Dates: start: 20170510, end: 20170515
  14. ULTIBRO [Concomitant]
     Active Substance: GLYCOPYRRONIUM\INDACATEROL
     Dosage: UNK
  15. CEFEPIME DCI [Concomitant]
     Dosage: UNK
     Dates: start: 20170516, end: 20170523
  16. CLAMOXYL [Suspect]
     Active Substance: AMOXICILLIN\CLAVULANIC ACID
     Indication: PNEUMONIA
     Dosage: UNK
     Route: 040
     Dates: start: 20170510, end: 20170515

REACTIONS (1)
  - Anticoagulation drug level above therapeutic [Not Recovered/Not Resolved]

NARRATIVE: CASE EVENT DATE: 20170515
